FAERS Safety Report 11111820 (Version 1)
Quarter: 2015Q2

REPORT INFORMATION
  Report Type: Spontaneous
  Country: US (occurrence: None)
  Receive Date: 20150513
  Receipt Date: 20150513
  Transmission Date: 20150821
  Serious: Yes (Other)
  Sender: FDA-Public Use
  Company Number: None

PATIENT
  Age: 18 Year
  Sex: Female
  Weight: 73.94 kg

DRUGS (5)
  1. RISPERDAL M-TAB [Suspect]
     Active Substance: RISPERIDONE
     Indication: AGGRESSION
  2. RISPERDAL M-TAB [Suspect]
     Active Substance: RISPERIDONE
     Indication: AUTISM
  3. KLONOPIN [Concomitant]
     Active Substance: CLONAZEPAM
  4. CLONIDINE. [Concomitant]
     Active Substance: CLONIDINE
  5. ZOLOFT [Concomitant]
     Active Substance: SERTRALINE HYDROCHLORIDE

REACTIONS (2)
  - Aggression [None]
  - Drug ineffective [None]

NARRATIVE: CASE EVENT DATE: 20120509
